FAERS Safety Report 8835839 (Version 2)
Quarter: 2012Q4

REPORT INFORMATION
  Report Type: 
  Country: IT (occurrence: IT)
  Receive Date: 20121011
  Receipt Date: 20121128
  Transmission Date: 20130627
  Serious: Yes (Life-Threatening)
  Sender: FDA-Public Use
  Company Number: IT-GLAXOSMITHKLINE-B0836764A

PATIENT
  Age: 73 Year
  Sex: Male

DRUGS (5)
  1. RYTMONORM [Suspect]
     Indication: ATRIAL FIBRILLATION
     Dosage: 2UNIT Twice per day
     Route: 042
     Dates: start: 20121001, end: 20121002
  2. RYTHMOL [Concomitant]
     Route: 048
  3. CRESTOR [Concomitant]
     Route: 048
  4. TAREG [Concomitant]
     Route: 048
  5. ESKIM [Concomitant]
     Route: 065

REACTIONS (2)
  - Bradycardia [Recovered/Resolved]
  - Hypotension [Recovered/Resolved]
